FAERS Safety Report 14918646 (Version 4)
Quarter: 2018Q3

REPORT INFORMATION
  Report Type: Spontaneous
  Country: HU (occurrence: HU)
  Receive Date: 20180521
  Receipt Date: 20180706
  Transmission Date: 20181010
  Serious: Yes (Hospitalization, Other)
  Sender: FDA-Public Use
  Company Number: HU-PFIZER INC-2018202362

PATIENT
  Age: 64 Year
  Sex: Female

DRUGS (4)
  1. BOSUTINIB [Suspect]
     Active Substance: BOSUTINIB
     Dosage: 400 MG, DAILY
     Dates: start: 20170405, end: 201704
  2. BOSUTINIB [Suspect]
     Active Substance: BOSUTINIB
     Dosage: 400 MG, DAILY
     Dates: start: 20170509, end: 2017
  3. BOSUTINIB [Suspect]
     Active Substance: BOSUTINIB
     Dosage: 300 MG, DAILY
     Dates: start: 20170419, end: 2017
  4. BOSUTINIB [Suspect]
     Active Substance: BOSUTINIB
     Dosage: 500 MG, DAILY
     Dates: start: 20170706

REACTIONS (2)
  - Diarrhoea [Recovered/Resolved]
  - Autoimmune thyroiditis [Unknown]

NARRATIVE: CASE EVENT DATE: 201707
